FAERS Safety Report 6451698-8 (Version None)
Quarter: 2009Q4

REPORT INFORMATION
  Report Type: 
  Country: None (occurrence: None)
  Receive Date: 20091123
  Receipt Date: 20091109
  Transmission Date: 20100525
  Serious: Yes (Death, Hospitalization)
  Sender: FDA-Public Use
  Company Number: AR-SANOFI-AVENTIS-200922214GDDC

PATIENT
  Age: 78 Year
  Sex: Male

DRUGS (5)
  1. DOCETAXEL [Suspect]
     Route: 041
     Dates: start: 20090828, end: 20091009
  2. BLINDED THERAPY [Suspect]
     Route: 048
     Dates: start: 20090828, end: 20091013
  3. PREDNISONE TAB [Suspect]
     Route: 048
     Dates: start: 20090828, end: 20091013
  4. DEXAMETHASONE [Suspect]
     Indication: PREMEDICATION
  5. ENALAPRIL MALEATE [Concomitant]
     Dates: start: 20070101

REACTIONS (2)
  - DEHYDRATION [None]
  - RENAL FAILURE ACUTE [None]
